FAERS Safety Report 22218945 (Version 3)
Quarter: 2023Q2

REPORT INFORMATION
  Report Type: Spontaneous
  Country: US (occurrence: US)
  Receive Date: 20230417
  Receipt Date: 20230530
  Transmission Date: 20230721
  Serious: Yes (Other)
  Sender: FDA-Public Use
  Company Number: US-BRISTOL-MYERS SQUIBB COMPANY-2023-053233

PATIENT
  Age: 84 Year
  Sex: Female
  Weight: 67.13 kg

DRUGS (1)
  1. REVLIMID [Suspect]
     Active Substance: LENALIDOMIDE
     Indication: Plasma cell myeloma
     Dosage: FREQUENCY: Q DAILY 21 DAYS ON, 7 DAYS OFF
     Route: 048
     Dates: start: 20230313, end: 20230411

REACTIONS (6)
  - Drug intolerance [Recovering/Resolving]
  - Dehydration [Recovered/Resolved]
  - Feeding disorder [Unknown]
  - Asthenia [Unknown]
  - Fatigue [Unknown]
  - Acute kidney injury [Unknown]

NARRATIVE: CASE EVENT DATE: 20230411
